FAERS Safety Report 12707815 (Version 1)
Quarter: 2016Q3

REPORT INFORMATION
  Report Type: Other
  Country: IT (occurrence: IT)
  Receive Date: 20160901
  Receipt Date: 20160901
  Transmission Date: 20161109
  Serious: Yes (Hospitalization)
  Sender: FDA-Public Use
  Company Number: IT-PFM-IT-2016-2563

PATIENT
  Age: 78 Year
  Sex: Male

DRUGS (5)
  1. GRANISETRON KABI [Concomitant]
     Active Substance: GRANISETRON
     Indication: PROPHYLAXIS OF NAUSEA AND VOMITING
     Dosage: 3 MG SINGLE
     Route: 042
     Dates: start: 20160627, end: 20160627
  2. SOLDESAM [Concomitant]
     Active Substance: DEXAMETHASONE
     Indication: INFLAMMATION
     Dosage: 8 MG SINGLE
     Route: 042
     Dates: start: 20160627, end: 20160627
  3. CARBOPLATIN TEVA [Suspect]
     Active Substance: CARBOPLATIN
     Indication: ADENOCARCINOMA
     Dosage: 275 MG, SINGLE
     Route: 042
     Dates: start: 20160627, end: 20160627
  4. NAVELBINE [Suspect]
     Active Substance: VINORELBINE TARTRATE
     Indication: ADENOCARCINOMA
     Dosage: 45 MG, SINGLE
     Route: 042
     Dates: start: 20160627, end: 20160627
  5. ZANTAC [Concomitant]
     Active Substance: RANITIDINE HYDROCHLORIDE
     Indication: PROPHYLAXIS OF NAUSEA AND VOMITING
     Dosage: 50 MG SINGLE
     Route: 042
     Dates: start: 20160627, end: 20160627

REACTIONS (4)
  - Adrenal gland injury [Unknown]
  - Hepatic lesion [Unknown]
  - Pulmonary embolism [Unknown]
  - Pleural effusion [Unknown]

NARRATIVE: CASE EVENT DATE: 20160720
